FAERS Safety Report 12900627 (Version 4)
Quarter: 2016Q4

REPORT INFORMATION
  Report Type: Spontaneous
  Country: FR (occurrence: FR)
  Receive Date: 20161101
  Receipt Date: 20161207
  Transmission Date: 20170207
  Serious: No
  Sender: FDA-Public Use
  Company Number: FR-BIOGEN-2016BI00305318

PATIENT
  Age: 40 Year
  Sex: Female

DRUGS (1)
  1. TECFIDERA [Suspect]
     Active Substance: DIMETHYL FUMARATE
     Indication: RELAPSING-REMITTING MULTIPLE SCLEROSIS
     Route: 065
     Dates: start: 201403, end: 201608

REACTIONS (3)
  - Cognitive disorder [Unknown]
  - Multiple sclerosis [Unknown]
  - Fatigue [Unknown]

NARRATIVE: CASE EVENT DATE: 201510
